APPROVED DRUG PRODUCT: ACTH
Active Ingredient: CORTICOTROPIN
Strength: 25 UNITS/VIAL
Dosage Form/Route: INJECTABLE;INJECTION
Application: N008317 | Product #002
Applicant: PARKEDALE PHARMACEUTICALS INC
Approved: Approved Prior to Jan 1, 1982 | RLD: No | RS: No | Type: DISCN